FAERS Safety Report 9901476 (Version 2)
Quarter: 2014Q1

REPORT INFORMATION
  Report Type: Spontaneous
  Country: US (occurrence: US)
  Receive Date: 20140217
  Receipt Date: 20140217
  Transmission Date: 20141002
  Serious: No
  Sender: FDA-Public Use
  Company Number: US-GILEAD-2011-0043633

PATIENT
  Age: 44 Year
  Sex: Female

DRUGS (1)
  1. LETAIRIS [Suspect]
     Indication: PULMONARY HYPERTENSION
     Route: 048
     Dates: start: 20080509, end: 20110729

REACTIONS (3)
  - Dizziness [Unknown]
  - Dyspnoea [Unknown]
  - Swelling [Unknown]
